FAERS Safety Report 4827377-7 (Version None)
Quarter: 2005Q4

REPORT INFORMATION
  Report Type: 
  Country: None (occurrence: None)
  Receive Date: 20051114
  Receipt Date: 20050811
  Transmission Date: 20060501
  Serious: Yes (Hospitalization, Congenital Anomaly, Other)
  Sender: FDA-Public Use
  Company Number: US-MERCK-0508USA02094

PATIENT
  Age: 72 Year
  Sex: Female
  Weight: 61 kg

DRUGS (14)
  1. VIOXX [Suspect]
     Indication: HEADACHE
     Route: 048
     Dates: start: 20011026, end: 20011030
  2. VIOXX [Suspect]
     Route: 048
     Dates: start: 20011031
  3. VIOXX [Suspect]
     Route: 048
     Dates: start: 20030814, end: 20041101
  4. TYLENOL (CAPLET) [Concomitant]
     Route: 065
  5. LIPITOR [Concomitant]
     Indication: BLOOD CHOLESTEROL INCREASED
     Route: 065
     Dates: start: 20000101
  6. ASPIRIN [Concomitant]
     Indication: PROPHYLAXIS
     Route: 065
     Dates: start: 20000101
  7. LOPRESSOR [Concomitant]
     Indication: HYPERTENSION
     Route: 065
     Dates: start: 20000101
  8. ACCUPRIL [Concomitant]
     Indication: HYPERTENSION
     Route: 065
     Dates: start: 20000101
  9. ACCURETIC [Concomitant]
     Indication: HYPERTENSION
     Route: 065
     Dates: start: 20020101
  10. GLIPIZIDE [Concomitant]
     Indication: DIABETES MELLITUS
     Route: 065
  11. GLUCOPHAGE [Concomitant]
     Indication: DIABETES MELLITUS
     Route: 065
  12. OXYBUTIN [Concomitant]
     Indication: BLADDER DISORDER
     Route: 065
  13. CELEXA [Concomitant]
     Indication: DEPRESSION
     Route: 065
     Dates: start: 20010101
  14. NEURONTIN [Concomitant]
     Indication: DIABETES MELLITUS
     Route: 065

REACTIONS (9)
  - BLOOD PRESSURE INCREASED [None]
  - CARDIAC DISORDER [None]
  - CAROTID ARTERY STENOSIS [None]
  - CEREBROVASCULAR ACCIDENT [None]
  - DRUG HYPERSENSITIVITY [None]
  - DYSPNOEA EXERTIONAL [None]
  - HEART DISEASE CONGENITAL [None]
  - OPTIC NERVE INFARCTION [None]
  - TREMOR [None]
